FAERS Safety Report 16741154 (Version 10)
Quarter: 2020Q2

REPORT INFORMATION
  Report Type: Report from Study
  Country: IT (occurrence: IT)
  Receive Date: 20190826
  Receipt Date: 20200414
  Transmission Date: 20200713
  Serious: Yes (Hospitalization, Other)
  Sender: FDA-Public Use
  Company Number: IT-JNJFOC-20190816587

PATIENT
  Age: 46 Year
  Sex: Male
  Weight: 62 kg

DRUGS (11)
  1. USTEKINUMAB [Suspect]
     Active Substance: USTEKINUMAB
     Indication: CROHN^S DISEASE
     Route: 058
     Dates: start: 20190115
  2. PROPOFOL. [Concomitant]
     Active Substance: PROPOFOL
     Dosage: ENDOSCOPY SEDATION
     Route: 042
     Dates: start: 20190103, end: 20190103
  3. NADROPARIN [Concomitant]
     Active Substance: NADROPARIN
     Dosage: OTHER
     Route: 058
     Dates: start: 20190813, end: 20190819
  4. RANITIDINE. [Concomitant]
     Active Substance: RANITIDINE
     Dosage: FOR GASTROPROTECTION DURING KETOROLAC ADMINISTRATION
     Route: 042
     Dates: start: 20190821, end: 20190822
  5. MIDAZOLAM. [Concomitant]
     Active Substance: MIDAZOLAM
     Indication: ENDOSCOPY
     Dosage: ENDOSCOPY SEDATION
     Route: 042
     Dates: start: 20190103, end: 20190103
  6. RANITIDINE. [Concomitant]
     Active Substance: RANITIDINE
     Dosage: FOR GASTROPROTECTION DURING KETOROLAC ADMINISTRATION
     Route: 042
     Dates: start: 20190809, end: 20190820
  7. FENTANYL. [Concomitant]
     Active Substance: FENTANYL
     Indication: ENDOSCOPY
     Dosage: ENDOSCOPY SEDATION
     Route: 042
     Dates: start: 20190103, end: 20190103
  8. NADROPARIN [Concomitant]
     Active Substance: NADROPARIN
     Indication: THROMBOSIS PROPHYLAXIS
     Route: 058
     Dates: start: 20190813, end: 20190819
  9. SELG ESSE [Concomitant]
     Indication: BOWEL PREPARATION
     Route: 048
     Dates: start: 20190102, end: 20190102
  10. PARACETAMOL [Concomitant]
     Active Substance: ACETAMINOPHEN
     Indication: INFLUENZA
     Route: 048
     Dates: start: 20190314, end: 20190315
  11. NADROPARIN [Concomitant]
     Active Substance: NADROPARIN
     Dosage: OTHER
     Route: 058
     Dates: start: 20190820, end: 20190826

REACTIONS (2)
  - Neuroendocrine carcinoma metastatic [Not Recovered/Not Resolved]
  - Abscess intestinal [Recovered/Resolved with Sequelae]

NARRATIVE: CASE EVENT DATE: 20190809
